FAERS Safety Report 8130279-4 (Version None)
Quarter: 2012Q1

REPORT INFORMATION
  Report Type: 
  Country: None (occurrence: None)
  Receive Date: 20120210
  Receipt Date: 20120206
  Transmission Date: 20120608
  Serious: Yes (Other)
  Sender: FDA-Public Use
  Company Number: PHEH2006US11225

PATIENT
  Sex: Male
  Weight: 83.447 kg

DRUGS (21)
  1. MONOPRIL [Concomitant]
     Dosage: 10 MG, QD
     Route: 048
  2. AREDIA [Suspect]
  3. ASPIRIN [Concomitant]
  4. ZOCOR [Concomitant]
  5. METOCLOPRAMIDE [Concomitant]
  6. DIOVAN [Concomitant]
  7. RESTORIL [Concomitant]
  8. AVANDIA [Concomitant]
  9. NEXIUM [Concomitant]
  10. PLAVIX [Concomitant]
  11. HYDROCHLOROTHIAZIDE [Concomitant]
  12. ZOMETA [Suspect]
     Dosage: UNK UKN, UNK
     Dates: end: 20051020
  13. NORVASC [Concomitant]
  14. CLONIDINE [Concomitant]
     Dosage: 0.1 MG, UNK
     Route: 048
  15. ATIVAN [Concomitant]
     Dosage: 1 MG, UNK
     Route: 048
  16. VASOTEC [Concomitant]
  17. ASPIRIN [Concomitant]
  18. INSULIN [Suspect]
  19. ACIPHEX [Concomitant]
  20. METFORMIN HCL [Concomitant]
  21. FELODIPINE [Concomitant]

REACTIONS (40)
  - ISCHAEMIA [None]
  - AORTIC VALVE INCOMPETENCE [None]
  - DYSPNOEA EXERTIONAL [None]
  - GENERAL PHYSICAL HEALTH DETERIORATION [None]
  - ANXIETY [None]
  - HYPERLIPIDAEMIA [None]
  - LOSS OF CONSCIOUSNESS [None]
  - PULMONARY VALVE INCOMPETENCE [None]
  - ARTERIOSCLEROSIS [None]
  - OSTEONECROSIS OF JAW [None]
  - OSTEITIS [None]
  - PLEURAL FIBROSIS [None]
  - VISION BLURRED [None]
  - BRONCHITIS CHRONIC [None]
  - IMPAIRED HEALING [None]
  - HYPOGLYCAEMIA [None]
  - VIITH NERVE PARALYSIS [None]
  - CORONARY ARTERY DISEASE [None]
  - DIZZINESS [None]
  - MITRAL VALVE INCOMPETENCE [None]
  - DECREASED INTEREST [None]
  - HYPERTENSION [None]
  - CARDIAC MURMUR [None]
  - GINGIVAL INFECTION [None]
  - HAEMORRHAGE [None]
  - SYNCOPE [None]
  - ANGINA PECTORIS [None]
  - MULTIPLE MYELOMA [None]
  - GASTROOESOPHAGEAL REFLUX DISEASE [None]
  - EMPHYSEMA [None]
  - HYPOAESTHESIA [None]
  - LEFT VENTRICULAR HYPERTROPHY [None]
  - MYOCARDIAL INFARCTION [None]
  - PAIN [None]
  - TYPE 1 DIABETES MELLITUS [None]
  - CHRONIC OBSTRUCTIVE PULMONARY DISEASE [None]
  - TRICUSPID VALVE INCOMPETENCE [None]
  - EXPOSED BONE IN JAW [None]
  - BONE LOSS [None]
  - THROMBOCYTOPENIA [None]
